FAERS Safety Report 4810504-5 (Version None)
Quarter: 2005Q4

REPORT INFORMATION
  Report Type: 
  Country: None (occurrence: None)
  Receive Date: 20051025
  Receipt Date: 20051025
  Transmission Date: 20060501
  Serious: Yes (Other)
  Sender: FDA-Public Use
  Company Number: None

PATIENT
  Age: 81 Year
  Sex: Male
  Weight: 70.3 kg

DRUGS (17)
  1. TERAZOSIN [Suspect]
  2. DICLOXACILLIN [Concomitant]
  3. HALOPERIDOL [Concomitant]
  4. DOCUSATE/SENNOSIDES [Concomitant]
  5. RISPERIDONE MICROSPHERE [Concomitant]
  6. ACETAMINOPHEN [Concomitant]
  7. METOPROLOL TARTRATE [Concomitant]
  8. TERAZOSIN HCL [Concomitant]
  9. ACETAMINOPHEN AND HYDROCODONE BITARTRATE [Concomitant]
  10. CYANOCOBALAMIN [Concomitant]
  11. LEVOTHYROXINE SODIUM [Concomitant]
  12. SIMVASTATIN [Concomitant]
  13. PAROXETINE HCL [Concomitant]
  14. OMEPRAZOLE [Concomitant]
  15. FINASTERIDE [Concomitant]
  16. MILK OF MAGNESIA SUSP [Concomitant]
  17. ALOH/MGOH/SIMTH [Concomitant]

REACTIONS (1)
  - HYPOTENSION [None]
